FAERS Safety Report 16260538 (Version 1)
Quarter: 2019Q2

REPORT INFORMATION
  Report Type: Spontaneous
  Country: US (occurrence: US)
  Receive Date: 20190430
  Receipt Date: 20190430
  Transmission Date: 20190711
  Serious: Yes (Disabling)
  Sender: FDA-Public Use
  Company Number: None

PATIENT
  Age: 63 Year
  Sex: Male
  Weight: 72 kg

DRUGS (1)
  1. LEVOFLOXACIN. [Suspect]
     Active Substance: LEVOFLOXACIN
     Indication: BRACHYTHERAPY
     Route: 042
     Dates: start: 20190121, end: 20190121

REACTIONS (5)
  - Hypoaesthesia oral [None]
  - Inflammation [None]
  - Contusion [None]
  - Pain in extremity [None]
  - Arthritis [None]

NARRATIVE: CASE EVENT DATE: 20190121
